FAERS Safety Report 6875311-0 (Version None)
Quarter: 2010Q3

REPORT INFORMATION
  Report Type: 
  Country: None (occurrence: None)
  Receive Date: 20100727
  Receipt Date: 20100715
  Transmission Date: 20110219
  Serious: Yes (Life-Threatening, Other)
  Sender: FDA-Public Use
  Company Number: PT-PFIZER INC-2010088313

PATIENT
  Age: 26 Year
  Sex: Female
  Weight: 80 kg

DRUGS (26)
  1. ECALTA [Suspect]
     Indication: SEPSIS
     Dosage: 200 MG, SINGLE
     Route: 042
     Dates: start: 20100713, end: 20100713
  2. ECALTA [Suspect]
     Dosage: 100 MG, 1X/DAY
     Route: 042
     Dates: start: 20100714, end: 20100714
  3. PHENYTOIN [Concomitant]
     Indication: STATUS EPILEPTICUS
     Dosage: UNK
     Dates: start: 20100601, end: 20100707
  4. VALPROATE SODIUM [Concomitant]
     Indication: STATUS EPILEPTICUS
     Dosage: UNK
     Dates: start: 20100601, end: 20100707
  5. LEVETIRACETAM [Concomitant]
     Indication: STATUS EPILEPTICUS
     Dosage: 250 MG, 2X/DAY
     Route: 042
     Dates: start: 20100601
  6. TOPIRAMATE [Concomitant]
     Indication: STATUS EPILEPTICUS
     Dosage: UNK
     Dates: start: 20100601, end: 20100707
  7. CLONAZEPAM [Concomitant]
     Indication: STATUS EPILEPTICUS
     Dosage: UNK
     Dates: start: 20100601, end: 20100707
  8. ACYCLOVIR [Concomitant]
     Indication: EVIDENCE BASED TREATMENT
     Dosage: UNK
     Dates: start: 20100601, end: 20100701
  9. GANCICLOVIR [Concomitant]
     Indication: EVIDENCE BASED TREATMENT
     Dosage: UNK
     Dates: start: 20100601, end: 20100701
  10. CEFTRIAXONE [Concomitant]
     Indication: EVIDENCE BASED TREATMENT
     Dosage: UNK
     Dates: start: 20100601, end: 20100701
  11. CLINDAMYCIN [Concomitant]
     Indication: EVIDENCE BASED TREATMENT
     Dosage: UNK
     Dates: start: 20100601, end: 20100701
  12. MEROPENEM [Concomitant]
     Indication: EVIDENCE BASED TREATMENT
     Dosage: UNK
     Dates: start: 20100601, end: 20100707
  13. LINEZOLID [Concomitant]
     Indication: EVIDENCE BASED TREATMENT
     Dosage: UNK
     Dates: start: 20100601, end: 20100707
  14. AMPHOTERICINE B, LIPOSOME [Concomitant]
     Dosage: UNK
     Dates: start: 20100707, end: 20100713
  15. VANCOMYCIN [Concomitant]
     Dosage: 1 G, UNK
     Route: 042
     Dates: start: 20100713
  16. AMIKACIN [Concomitant]
     Dosage: 500 MG, 1X/DAY
     Route: 042
     Dates: start: 20100713
  17. CEFTAZIDIME [Concomitant]
     Dosage: 2 G, 2X/DAY
     Route: 042
     Dates: start: 20100713
  18. METHYLPREDNISOLONE [Concomitant]
     Dosage: 1 G, 1X/DAY
     Route: 042
     Dates: start: 20100713
  19. POLYGAM S/D [Concomitant]
     Dosage: 20 G, 1X/DAY
     Route: 042
     Dates: start: 20100713
  20. CARBAMAZEPINE [Concomitant]
     Indication: STATUS EPILEPTICUS
     Dosage: 200 MG, 2X/DAY
     Dates: start: 20100601
  21. MIDAZOLAM [Concomitant]
     Dosage: 20 MG/H
     Route: 042
  22. FENTANYL [Concomitant]
     Dosage: 100 UG/H
     Route: 042
  23. PROPOFOL [Concomitant]
     Dosage: 100 MG/H
     Route: 042
  24. PANTOPRAZOLE [Concomitant]
     Dosage: 40 MG, 1X/DAY
     Route: 042
  25. METHOCLOPRAMIDE [Concomitant]
     Dosage: 5 MG, 3X/DAY
     Route: 042
  26. VITAMIN K TAB [Concomitant]
     Dosage: 10 MG, ALTERNATE DAY
     Route: 042

REACTIONS (1)
  - VENTRICULAR FIBRILLATION [None]
